FAERS Safety Report 9236506 (Version 10)
Quarter: 2013Q4

REPORT INFORMATION
  Report Type: Report from Study
  Country: CA (occurrence: CA)
  Receive Date: 20130417
  Receipt Date: 20131011
  Transmission Date: 20140711
  Serious: Yes (Other)
  Sender: FDA-Public Use
  Company Number: CA-ROCHE-1165456

PATIENT
  Age: 54 Year
  Sex: Female
  Weight: 77.7 kg

DRUGS (21)
  1. ACTEMRA [Suspect]
     Indication: SPONDYLITIS
     Route: 042
     Dates: start: 20120227
  2. ACTEMRA [Suspect]
     Indication: PSORIATIC ARTHROPATHY
     Dosage: DOSE INCREASED
     Route: 042
     Dates: start: 20130416
  3. ACTEMRA [Suspect]
     Indication: RHEUMATOID ARTHRITIS
     Route: 042
     Dates: start: 20130513
  4. ACTEMRA [Suspect]
     Route: 042
     Dates: start: 20130611
  5. CORTISONE [Suspect]
     Indication: PRODUCT USED FOR UNKNOWN INDICATION
     Route: 065
  6. SYNTHROID [Concomitant]
  7. CYCLOBENZAPRINE [Concomitant]
  8. APO-CLONIDINE [Concomitant]
  9. SUPEUDOL [Concomitant]
  10. AVELOX [Concomitant]
  11. MIRTAZAPINE [Concomitant]
  12. FOSINOPRIL [Concomitant]
  13. LIPIDIL SUPRA [Concomitant]
  14. ZOPICLONE [Concomitant]
  15. LANSOPRAZOLE [Concomitant]
  16. ACLASTA [Concomitant]
  17. HYDROXYZINE [Concomitant]
  18. TRIAZIDE [Concomitant]
  19. SALBUTAMOL [Concomitant]
  20. EPIPEN [Concomitant]
  21. CLONIDINE [Concomitant]

REACTIONS (20)
  - Rheumatoid arthritis [Not Recovered/Not Resolved]
  - Arthralgia [Not Recovered/Not Resolved]
  - Fatigue [Not Recovered/Not Resolved]
  - Fatigue [Recovered/Resolved]
  - Headache [Recovered/Resolved]
  - Musculoskeletal stiffness [Not Recovered/Not Resolved]
  - Weight increased [Not Recovered/Not Resolved]
  - Drug administration error [Unknown]
  - Insomnia [Unknown]
  - Agitation [Unknown]
  - No therapeutic response [Unknown]
  - Diarrhoea [Not Recovered/Not Resolved]
  - Arthralgia [Not Recovered/Not Resolved]
  - Diarrhoea [Recovered/Resolved]
  - Vomiting [Recovered/Resolved]
  - Arthralgia [Unknown]
  - Myalgia [Recovered/Resolved]
  - Throat irritation [Not Recovered/Not Resolved]
  - Rhinorrhoea [Not Recovered/Not Resolved]
  - Cough [Unknown]
